FAERS Safety Report 7518448-5 (Version None)
Quarter: 2011Q2

REPORT INFORMATION
  Report Type: 
  Country: None (occurrence: None)
  Receive Date: 20110602
  Receipt Date: 20110525
  Transmission Date: 20111010
  Serious: No
  Sender: FDA-Public Use
  Company Number: US-JNJFOC-20110511690

PATIENT
  Sex: Female
  Weight: 122.47 kg

DRUGS (2)
  1. DURAGESIC-100 [Suspect]
     Indication: BACK PAIN
     Route: 062
     Dates: start: 20100501, end: 20110518
  2. PERCOCET [Concomitant]
     Indication: PAIN
     Dosage: 10- 325 MG
     Route: 048
     Dates: start: 20060101

REACTIONS (3)
  - ACTIVITIES OF DAILY LIVING IMPAIRED [None]
  - INCORRECT DRUG ADMINISTRATION DURATION [None]
  - PAIN [None]
